FAERS Safety Report 11707174 (Version 1)
Quarter: 2015Q4

REPORT INFORMATION
  Report Type: Spontaneous
  Country: CA (occurrence: CA)
  Receive Date: 20151106
  Receipt Date: 20151106
  Transmission Date: 20160304
  Serious: Yes (Life-Threatening)
  Sender: FDA-Public Use
  Company Number: CA-TEVA-605423ACC

PATIENT
  Age: 72 Year
  Sex: Male
  Weight: 80 kg

DRUGS (19)
  1. PERINDOPRIL [Concomitant]
     Active Substance: PERINDOPRIL
  2. WARFARIN [Concomitant]
     Active Substance: WARFARIN
  3. CIPROFLOXACIN INJECTION USP [Suspect]
     Active Substance: CIPROFLOXACIN
     Indication: ENTEROBACTER INFECTION
     Dosage: 800 MILLIGRAM DAILY;
     Route: 042
  4. BISOPROLOL [Concomitant]
     Active Substance: BISOPROLOL
  5. DOCUSATE SODIUM. [Concomitant]
     Active Substance: DOCUSATE SODIUM
  6. ROSUVASTATIN [Concomitant]
     Active Substance: ROSUVASTATIN
  7. TERAZOSIN [Concomitant]
     Active Substance: TERAZOSIN\TERAZOSIN HYDROCHLORIDE
  8. VANCOMYCIN HYDROCHLORIDE FOR INJECTION, USP [Suspect]
     Active Substance: VANCOMYCIN HYDROCHLORIDE
     Indication: STAPHYLOCOCCAL INFECTION
     Dosage: 2000 MILLIGRAM DAILY;
     Route: 042
  9. FRAGMIN [Concomitant]
     Active Substance: DALTEPARIN SODIUM
     Route: 042
  10. GLYBURIDE. [Concomitant]
     Active Substance: GLYBURIDE
  11. PREGABALIN. [Concomitant]
     Active Substance: PREGABALIN
  12. SENNOSIDES. [Concomitant]
     Active Substance: SENNOSIDES
  13. AMLODIPINE [Concomitant]
     Active Substance: AMLODIPINE BESYLATE
  14. CLONIDINE. [Concomitant]
     Active Substance: CLONIDINE
  15. LORAZEPAM. [Concomitant]
     Active Substance: LORAZEPAM
  16. METFORMIN [Concomitant]
     Active Substance: METFORMIN HYDROCHLORIDE
  17. ACETAMINOPHEN. [Concomitant]
     Active Substance: ACETAMINOPHEN
  18. HYDROMORPHONE [Concomitant]
     Active Substance: HYDROMORPHONE
  19. ONGLYZA [Concomitant]
     Active Substance: SAXAGLIPTIN HYDROCHLORIDE

REACTIONS (1)
  - Neutrophil count decreased [Not Recovered/Not Resolved]
